FAERS Safety Report 6960965-0 (Version None)
Quarter: 2010Q3

REPORT INFORMATION
  Report Type: 
  Country: None (occurrence: None)
  Receive Date: 20100901
  Receipt Date: 20100822
  Transmission Date: 20110219
  Serious: Yes (Death)
  Sender: FDA-Public Use
  Company Number: NZ-BAXTER-2010BH022239

PATIENT
  Age: 68 Year
  Sex: Male

DRUGS (5)
  1. EXTRANEAL [Suspect]
     Indication: PERITONEAL DIALYSIS
     Route: 033
  2. DIANEAL LOW CALCIUM WITH DEXTROSE 4.25% AND CALCIUM 2.5MEQ/L [Suspect]
     Indication: PERITONEAL DIALYSIS
     Route: 033
  3. DIANEAL LOW CALCIUM WITH DEXTROSE 4.25% AND CALCIUM 2.5MEQ/L [Suspect]
     Indication: PERITONEAL DIALYSIS
     Route: 033
  4. DIANEAL [Suspect]
     Indication: PERITONEAL DIALYSIS
     Route: 033
  5. DIANEAL [Suspect]
     Indication: PERITONEAL DIALYSIS
     Route: 033

REACTIONS (1)
  - DEATH [None]
